FAERS Safety Report 17509094 (Version 1)
Quarter: 2020Q1

REPORT INFORMATION
  Report Type: Spontaneous
  Country: US (occurrence: US)
  Receive Date: 20200306
  Receipt Date: 20200306
  Transmission Date: 20200409
  Serious: Yes (Other)
  Sender: FDA-Public Use
  Company Number: US-GLAXOSMITHKLINE-US2020AMR039828

PATIENT
  Sex: Female

DRUGS (1)
  1. FLOVENT HFA [Suspect]
     Active Substance: FLUTICASONE PROPIONATE
     Indication: PRODUCT USED FOR UNKNOWN INDICATION
     Dosage: 2 PUFF(S), QD
     Route: 065

REACTIONS (7)
  - Fatigue [Unknown]
  - Intentional product misuse [Unknown]
  - Ill-defined disorder [Unknown]
  - Cardiac disorder [Unknown]
  - Basedow^s disease [Unknown]
  - Cough [Unknown]
  - Intentional underdose [Unknown]

NARRATIVE: CASE EVENT DATE: 2012
